FAERS Safety Report 5090991-0 (Version None)
Quarter: 2006Q3

REPORT INFORMATION
  Report Type: 
  Country: None (occurrence: None)
  Receive Date: 20060727
  Receipt Date: 20060418
  Transmission Date: 20061208
  Serious: Yes (Other)
  Sender: FDA-Public Use
  Company Number: 2006053123

PATIENT
  Sex: Female

DRUGS (2)
  1. LYRICA [Suspect]
     Indication: FIBROMYALGIA
     Dosage: (75 MG, UNKNOWN)
  2. AMERICAINE (BENZETHONIUM CHLORIDE, BENZOCAINE) [Suspect]
     Indication: ILL-DEFINED DISORDER
     Dates: start: 20060417

REACTIONS (3)
  - HEADACHE [None]
  - NERVOUSNESS [None]
  - VISION BLURRED [None]
